FAERS Safety Report 6897202-1 (Version None)
Quarter: 2010Q3

REPORT INFORMATION
  Report Type: 
  Country: None (occurrence: None)
  Receive Date: 20100802
  Receipt Date: 20070425
  Transmission Date: 20110219
  Serious: No
  Sender: FDA-Public Use
  Company Number: US-PFIZER INC-2007035134

PATIENT
  Sex: Male
  Weight: 90 kg

DRUGS (12)
  1. LYRICA [Suspect]
     Indication: NERVE INJURY
     Dates: start: 20070301
  2. CARVEDILOL [Concomitant]
  3. FERROUS SULFATE TAB [Concomitant]
  4. NORTRIPTYLINE [Concomitant]
  5. LISINOPRIL [Concomitant]
  6. SIMVASTATIN [Concomitant]
  7. FELODIPINE [Concomitant]
  8. FUROSEMIDE [Concomitant]
  9. POTASSIUM CHLORIDE [Concomitant]
  10. VIAGRA [Suspect]
  11. OXYCODONE HCL AND ACETAMINOPHEN [Concomitant]
  12. CELEBREX [Concomitant]

REACTIONS (3)
  - DRY MOUTH [None]
  - OEDEMA PERIPHERAL [None]
  - WEIGHT INCREASED [None]
